FAERS Safety Report 5615890-4 (Version None)
Quarter: 2008Q1

REPORT INFORMATION
  Report Type: 
  Country: None (occurrence: None)
  Receive Date: 20080201
  Receipt Date: 20080125
  Transmission Date: 20080703
  Serious: Yes (Other)
  Sender: FDA-Public Use
  Company Number: 2008AP000280

PATIENT
  Age: 36 Year
  Sex: Male

DRUGS (7)
  1. PAROXETINE HCL [Suspect]
     Dosage: SEE IMAGE
     Route: 048
     Dates: start: 20020101
  2. PAROXETINE HCL [Suspect]
     Dosage: SEE IMAGE
     Route: 048
     Dates: start: 20020430
  3. PAROXETINE HCL [Suspect]
     Dosage: SEE IMAGE
     Route: 048
     Dates: start: 20030724
  4. PAROXETINE HCL [Suspect]
     Dosage: SEE IMAGE
     Route: 048
     Dates: start: 20030724
  5. PAROXETINE HCL [Suspect]
     Dosage: SEE IMAGE
     Route: 048
     Dates: start: 20030901
  6. FLUOXETINE HCL [Concomitant]
  7. ZOPICLONE (ZOPICLONE) [Concomitant]

REACTIONS (14)
  - AGGRESSION [None]
  - ANGER [None]
  - ANXIETY [None]
  - DEPRESSED MOOD [None]
  - DRUG WITHDRAWAL SYNDROME [None]
  - EARLY MORNING AWAKENING [None]
  - FATIGUE [None]
  - FLIGHT OF IDEAS [None]
  - IRRITABILITY [None]
  - MOOD SWINGS [None]
  - PARANOIA [None]
  - SELF ESTEEM DECREASED [None]
  - SLEEP DISORDER [None]
  - SUICIDAL IDEATION [None]
